FAERS Safety Report 9171066 (Version 1)
Quarter: 2013Q1

REPORT INFORMATION
  Report Type: Spontaneous
  Country: US (occurrence: None)
  Receive Date: 20130315
  Receipt Date: 20130315
  Transmission Date: 20140127
  Serious: Yes (Death)
  Sender: FDA-Public Use
  Company Number: 20130087

PATIENT
  Age: 58 Year
  Sex: Male
  Weight: 91 kg

DRUGS (19)
  1. METHYLENE BLUE INJECTION, USP (0301-10) 1% [Suspect]
     Dosage: 1.5 ML IN 100 ML 0.9%NACL URETHRAL
     Route: 066
     Dates: start: 20121213, end: 20121213
  2. AMBIEN(ZOLPIDEM) [Concomitant]
  3. DEXAMETHASONE SODIUM PHOSPHATE INJECTION [Concomitant]
  4. EPINEPHRINE INJECTION [Concomitant]
  5. FENTANYL [Concomitant]
  6. KLONOPIN(CLONAZEPAM) [Concomitant]
  7. LIDOCAINE HCL INJECTION [Concomitant]
  8. PAROXETINE [Concomitant]
  9. PHENYLEPHRINE HCL INJECTION [Concomitant]
  10. VANCOMYCIN [Concomitant]
  11. ZOCOR(SIMVASTATIN) [Concomitant]
  12. PROPOFOL [Concomitant]
  13. DIPHENHYDRAMINE [Concomitant]
  14. LACTATED RINGERS [Concomitant]
  15. EDPHEDRINE [Concomitant]
  16. GENTAMICIN [Concomitant]
  17. MULTIVITAMIN [Concomitant]
  18. LEVOTHYROXINE [Concomitant]
  19. CALCIUM ACETATE [Concomitant]

REACTIONS (12)
  - Pulseless electrical activity [None]
  - Electrocardiogram ST segment depression [None]
  - Electrocardiogram ST segment elevation [None]
  - Cardiac arrest [None]
  - Disseminated intravascular coagulation [None]
  - Incision site haemorrhage [None]
  - Renal failure acute [None]
  - Abdominal distension [None]
  - Abdominal compartment syndrome [None]
  - Hypotension [None]
  - Anaphylactic reaction [None]
  - Tryptase increased [None]
